FAERS Safety Report 4608128-8 (Version None)
Quarter: 2005Q2

REPORT INFORMATION
  Report Type: 
  Country: None (occurrence: None)
  Receive Date: 20050301
  Receipt Date: 20040316
  Transmission Date: 20051028
  Serious: Yes (Other)
  Sender: FDA-Public Use
  Company Number: BDI-005951

PATIENT
  Age: 79 Year
  Sex: Male
  Weight: 74 kg

DRUGS (4)
  1. IOPAMIDOL [Suspect]
     Indication: ANGINA UNSTABLE
     Dosage: 210 ML ONCE IC
     Dates: start: 20040217, end: 20040217
  2. IOPAMIDOL [Suspect]
     Indication: CATHETERISATION CARDIAC
     Dosage: 210 ML ONCE IC
     Dates: start: 20040217, end: 20040217
  3. FENTANYL [Concomitant]
  4. VERSED [Concomitant]

REACTIONS (2)
  - TREMOR [None]
  - WHEEZING [None]
